FAERS Safety Report 20004464 (Version 1)
Quarter: 2021Q4

REPORT INFORMATION
  Report Type: Report from Study
  Country: ES (occurrence: ES)
  Receive Date: 20211027
  Receipt Date: 20211027
  Transmission Date: 20220303
  Serious: Yes (Other)
  Sender: FDA-Public Use
  Company Number: ES-SA-SAC20210123000218

PATIENT
  Age: 83 Year
  Sex: Female
  Weight: 78 kg

DRUGS (6)
  1. PREDNISONE [Suspect]
     Active Substance: PREDNISONE
     Indication: Pain in extremity
     Dosage: UNK
     Route: 065
  2. HEPARIN [Suspect]
     Active Substance: HEPARIN SODIUM
     Indication: Skin discolouration
     Dosage: UNK (UNK)
  3. HEPARIN [Suspect]
     Active Substance: HEPARIN SODIUM
     Indication: Pain in extremity
  4. INSULIN GLARGINE [Suspect]
     Active Substance: INSULIN GLARGINE
     Indication: Type 2 diabetes mellitus
     Dosage: 34 INTERNATIONAL UNIT (34 IU)
     Route: 058
     Dates: start: 201801
  5. INSULIN GLARGINE [Suspect]
     Active Substance: INSULIN GLARGINE
     Dosage: UNK (DOSE INCREASED)
  6. METFORMIN HYDROCHLORIDE\VILDAGLIPTIN [Concomitant]
     Active Substance: METFORMIN HYDROCHLORIDE\VILDAGLIPTIN
     Indication: Type 2 diabetes mellitus
     Dosage: 1 DOSAGE FORM, BID (1 DF, BID)
     Route: 048

REACTIONS (13)
  - Cardiac failure chronic [Unknown]
  - Diabetes mellitus inadequate control [Recovering/Resolving]
  - Blood glucose abnormal [Unknown]
  - Nervousness [Unknown]
  - Depressed mood [Unknown]
  - Fatigue [Unknown]
  - Pain in extremity [Recovering/Resolving]
  - Localised infection [Recovering/Resolving]
  - Limb injury [Unknown]
  - Contusion [Recovering/Resolving]
  - Decreased appetite [Unknown]
  - Skin discolouration [Recovering/Resolving]
  - Blood glucose increased [Recovered/Resolved]

NARRATIVE: CASE EVENT DATE: 20210101
